FAERS Safety Report 5900895-6 (Version None)
Quarter: 2008Q3

REPORT INFORMATION
  Report Type: 
  Country: None (occurrence: None)
  Receive Date: 20080929
  Receipt Date: 20080926
  Transmission Date: 20090109
  Serious: Yes (Death, Other)
  Sender: FDA-Public Use
  Company Number: PHEH2008US08621

PATIENT
  Sex: Female

DRUGS (10)
  1. MYFORTIC [Suspect]
     Indication: GASTROINTESTINAL DISORDER
     Dosage: 360 MG, BID
     Route: 048
     Dates: start: 20050427
  2. NEORAL [Suspect]
     Indication: RENAL TRANSPLANT
     Dosage: 100 MG, BID
     Route: 048
     Dates: start: 20060808
  3. TOPROL-XL [Concomitant]
  4. LASIX [Concomitant]
  5. ENALAPRIL MALEATE [Concomitant]
  6. SENSIPAR [Concomitant]
  7. PREDNISONE TAB [Concomitant]
  8. FELODIPINE [Concomitant]
  9. COZAAR [Concomitant]
  10. CRESTOR [Concomitant]

REACTIONS (2)
  - AORTIC VALVE REPLACEMENT [None]
  - METABOLIC ACIDOSIS [None]
